FAERS Safety Report 6919425-5 (Version None)
Quarter: 2010Q3

REPORT INFORMATION
  Report Type: 
  Country: None (occurrence: None)
  Receive Date: 20100811
  Receipt Date: 20100803
  Transmission Date: 20110219
  Serious: Yes (Life-Threatening, Hospitalization)
  Sender: FDA-Public Use
  Company Number: B0389197A

PATIENT
  Sex: Male

DRUGS (5)
  1. LAMICTAL [Suspect]
     Indication: DEPRESSION
     Dosage: 25MG PER DAY
     Route: 048
     Dates: start: 20050617, end: 20050701
  2. ESCITALOPRAM [Concomitant]
     Route: 048
     Dates: start: 20050617, end: 20050701
  3. CIPRALEX [Concomitant]
     Dosage: 10MG PER DAY
     Route: 065
  4. DIAZEPAM [Concomitant]
     Dosage: 10MG PER DAY
  5. CLOMIPRAMINE [Concomitant]

REACTIONS (23)
  - APHAGIA [None]
  - BLINDNESS [None]
  - BLISTER [None]
  - CORNEAL LEUKOMA [None]
  - ERYTHEMA [None]
  - EYE INFLAMMATION [None]
  - EYE PENETRATION [None]
  - FACE OEDEMA [None]
  - ILL-DEFINED DISORDER [None]
  - LOCALISED OEDEMA [None]
  - MUCOSA VESICLE [None]
  - MYALGIA [None]
  - OROPHARYNGEAL BLISTERING [None]
  - PRURITUS [None]
  - PYREXIA [None]
  - RASH [None]
  - RASH ERYTHEMATOUS [None]
  - RASH VESICULAR [None]
  - SKIN DISORDER [None]
  - SKIN EROSION [None]
  - SKIN ULCER [None]
  - TOXIC EPIDERMAL NECROLYSIS [None]
  - VISUAL IMPAIRMENT [None]
